FAERS Safety Report 7927748-6 (Version None)
Quarter: 2011Q4

REPORT INFORMATION
  Report Type: 
  Country: None (occurrence: None)
  Receive Date: 20111118
  Receipt Date: 20110610
  Transmission Date: 20120403
  Serious: No
  Sender: FDA-Public Use
  Company Number: US-BRISTOL-MYERS SQUIBB COMPANY-15760879

PATIENT

DRUGS (1)
  1. METFORMIN HCL [Suspect]
     Dosage: 1DF:METFORMIN HCL XR 1000MG

REACTIONS (1)
  - DRUG INEFFECTIVE [None]
